FAERS Safety Report 4319250-8 (Version None)
Quarter: 2004Q1

REPORT INFORMATION
  Report Type: 
  Country: None (occurrence: None)
  Receive Date: 20040318
  Receipt Date: 20040318
  Transmission Date: 20041129
  Serious: Yes (Other)
  Sender: FDA-Public Use
  Company Number: None

PATIENT
  Age: 35 Year
  Sex: Female
  Weight: 61.2356 kg

DRUGS (1)
  1. ZICAM NASAL SPRAY MATRIXX (ZONC) [Suspect]
     Indication: NASOPHARYNGITIS
     Dosage: 1 SPR EA NOS EVERY 4 HR NASAL
     Route: 045
     Dates: start: 20031115, end: 20031117

REACTIONS (6)
  - ANOSMIA [None]
  - DYSGEUSIA [None]
  - LACRIMATION INCREASED [None]
  - NASAL DISCOMFORT [None]
  - PAIN [None]
  - VERTIGO [None]
